FAERS Safety Report 17957624 (Version 2)
Quarter: 2025Q4

REPORT INFORMATION
  Report Type: Spontaneous
  Country: US (occurrence: US)
  Receive Date: 20200629
  Receipt Date: 20251115
  Transmission Date: 20260117
  Serious: Yes (Life-Threatening, Hospitalization, Other)
  Sender: MACLEODS
  Company Number: None

PATIENT

DRUGS (1)
  1. LIDOCAINE [Suspect]
     Active Substance: LIDOCAINE
     Indication: Local anaesthesia
     Dosage: UNK, 4% LIDOCAINE CREAM WHICH THEY APPLIED MULTIPLE TIMES DURING THE DAY
     Route: 061

REACTIONS (3)
  - Status epilepticus [Recovered/Resolved]
  - Local anaesthetic systemic toxicity [Recovered/Resolved]
  - Generalised tonic-clonic seizure [Recovered/Resolved]
